FAERS Safety Report 7887107-1 (Version None)
Quarter: 2011Q4

REPORT INFORMATION
  Report Type: 
  Country: None (occurrence: None)
  Receive Date: 20111102
  Receipt Date: 20110714
  Transmission Date: 20120403
  Serious: Yes (Other)
  Sender: FDA-Public Use
  Company Number: US-AMGEN-USASP2011035986

PATIENT
  Sex: Female

DRUGS (3)
  1. METHOTREXATE [Concomitant]
  2. ENBREL [Suspect]
     Indication: PUSTULAR PSORIASIS
  3. ENBREL [Suspect]
     Indication: PSORIATIC ARTHROPATHY
     Dosage: 50 MG, QWK
     Dates: start: 20080707

REACTIONS (5)
  - NASOPHARYNGITIS [None]
  - INFLUENZA [None]
  - NODULE [None]
  - PSORIATIC ARTHROPATHY [None]
  - PUSTULAR PSORIASIS [None]
